FAERS Safety Report 9078407 (Version 1)
Quarter: 2013Q1

REPORT INFORMATION
  Report Type: Spontaneous
  Country: US (occurrence: US)
  Receive Date: 20130215
  Receipt Date: 20130215
  Transmission Date: 20140127
  Serious: Yes (Hospitalization)
  Sender: FDA-Public Use
  Company Number: US-ABBOTT-13P-163-1048090-00

PATIENT
  Age: 61 None
  Sex: Male
  Weight: 63.56 kg

DRUGS (3)
  1. CREON [Suspect]
     Indication: PANCREATITIS CHRONIC
     Dosage: 3 CAPSULES WITH EACH MEAL FOR YEARS
     Dates: end: 201301
  2. CREON [Suspect]
     Dosage: 1 CAPSULE WITH EACH MEAL
     Dates: start: 201301, end: 201301
  3. CREON [Suspect]
     Dosage: 3 CAPSULES WITH EACH MEAL
     Dates: start: 201301

REACTIONS (7)
  - Abasia [Recovered/Resolved]
  - Endocarditis [Recovered/Resolved]
  - Abdominal pain upper [Not Recovered/Not Resolved]
  - Flatulence [Not Recovered/Not Resolved]
  - Vomiting [Not Recovered/Not Resolved]
  - Dizziness [Not Recovered/Not Resolved]
  - Abdominal distension [Not Recovered/Not Resolved]
